FAERS Safety Report 6247818-0 (Version None)
Quarter: 2009Q2

REPORT INFORMATION
  Report Type: 
  Country: None (occurrence: None)
  Receive Date: 20090626
  Receipt Date: 20090615
  Transmission Date: 20091009
  Serious: Yes (Hospitalization, Other)
  Sender: FDA-Public Use
  Company Number: US-ELI_LILLY_AND_COMPANY-US200906005663

PATIENT
  Sex: Male
  Weight: 85.714 kg

DRUGS (10)
  1. GEMZAR [Suspect]
     Indication: PANCREATIC CARCINOMA
     Dosage: UNK, OTHER
     Route: 042
     Dates: start: 20080618
  2. METAMUCIL /00091301/ [Concomitant]
  3. DIPHENHYDRAMINE HCL [Concomitant]
     Dates: start: 20080618
  4. ONDANSETRON [Concomitant]
     Dates: start: 20080128
  5. PROCHLORPERAZINE [Concomitant]
     Dates: start: 20080128
  6. RABEPRAZOLE SODIUM [Concomitant]
     Dates: start: 20080104
  7. WARFARIN SODIUM [Concomitant]
     Dates: start: 20080205
  8. SENNA [Concomitant]
     Dates: start: 20080423
  9. NORCO [Concomitant]
     Dates: start: 20080423
  10. ACCUPRIL [Concomitant]
     Dates: start: 20080522, end: 20080606

REACTIONS (7)
  - ABDOMINAL PAIN [None]
  - ASPARTATE AMINOTRANSFERASE INCREASED [None]
  - BLOOD ALKALINE PHOSPHATASE INCREASED [None]
  - BLOOD LACTATE DEHYDROGENASE INCREASED [None]
  - HYPERBILIRUBINAEMIA [None]
  - PYREXIA [None]
  - STENT OCCLUSION [None]
